FAERS Safety Report 10419929 (Version 2)
Quarter: 2014Q4

REPORT INFORMATION
  Report Type: Report from Study
  Country: NL (occurrence: NL)
  Receive Date: 20140829
  Receipt Date: 20141203
  Transmission Date: 20150528
  Serious: Yes (Death)
  Sender: FDA-Public Use
  Company Number: NL-ABBVIE-14P-114-1278190-00

PATIENT
  Sex: Male

DRUGS (1)
  1. LUCRIN DEPOT (LEUPRORELINE) [Suspect]
     Active Substance: LEUPROLIDE ACETATE
     Indication: PROSTATE CANCER
     Route: 058
     Dates: start: 20121231

REACTIONS (2)
  - Intestinal ischaemia [Fatal]
  - Paraplegia [Fatal]
